FAERS Safety Report 5617283-2 (Version None)
Quarter: 2008Q1

REPORT INFORMATION
  Report Type: 
  Country: None (occurrence: None)
  Receive Date: 20080207
  Receipt Date: 20070709
  Transmission Date: 20080703
  Serious: No
  Sender: FDA-Public Use
  Company Number: A0662496A

PATIENT
  Age: 60 Year
  Sex: Female

DRUGS (3)
  1. PAXIL [Suspect]
     Indication: ANXIETY DISORDER
     Dosage: 20MG PER DAY
     Route: 048
     Dates: start: 20070624
  2. SEROQUEL [Concomitant]
  3. LIBRIUM [Concomitant]

REACTIONS (1)
  - ORGASMIC SENSATION DECREASED [None]
